FAERS Safety Report 7896087 (Version 2)
Quarter: 2012Q4

REPORT INFORMATION
  Report Type: 
  Country: US (occurrence: US)
  Receive Date: 20110412
  Receipt Date: 20120905
  Transmission Date: 20130627
  Serious: Yes (Hospitalization, Other)
  Sender: FDA-Public Use
  Company Number: US-US-EMD SERONO, INC.-7052464

PATIENT
  Age: 69 None
  Sex: Female
  Weight: 82 kg

DRUGS (1)
  1. REBIF [Suspect]
     Indication: MULTIPLE SCLEROSIS
     Route: 058
     Dates: start: 20050927, end: 201202

REACTIONS (10)
  - Type 2 diabetes mellitus [Unknown]
  - Viral infection [Recovered/Resolved]
  - Heart rate decreased [Recovered/Resolved]
  - Vital functions abnormal [Recovered/Resolved]
  - Dehydration [Recovered/Resolved]
  - Multiple sclerosis [Recovered/Resolved]
  - Fibromyalgia [Not Recovered/Not Resolved]
  - Anxiety [Unknown]
  - Depression [Unknown]
  - Influenza like illness [Unknown]
